FAERS Safety Report 23284716 (Version 1)
Quarter: 2023Q4

REPORT INFORMATION
  Report Type: Spontaneous
  Country: US (occurrence: None)
  Receive Date: 20231211
  Receipt Date: 20231211
  Transmission Date: 20240110
  Serious: Yes (Disabling)
  Sender: FDA-Public Use
  Company Number: None

PATIENT
  Age: 73 Year
  Sex: Female
  Weight: 73.03 kg

DRUGS (14)
  1. PROLIA [Suspect]
     Active Substance: DENOSUMAB
  2. LIPITOR [Suspect]
     Active Substance: ATORVASTATIN CALCIUM
  3. REPATHA [Concomitant]
     Active Substance: EVOLOCUMAB
  4. VALTREX [Concomitant]
     Active Substance: VALACYCLOVIR HYDROCHLORIDE
  5. Xiidra eyes drops [Concomitant]
  6. PLAVIX [Concomitant]
     Active Substance: CLOPIDOGREL BISULFATE
  7. AMLODIPINE [Concomitant]
     Active Substance: AMLODIPINE BESYLATE
  8. RECLAST [Concomitant]
     Active Substance: ZOLEDRONIC ACID
  9. CELEBREX [Concomitant]
     Active Substance: CELECOXIB
  10. TYLENOL [Concomitant]
     Active Substance: ACETAMINOPHEN
  11. Vut D [Concomitant]
  12. VITAMIN B COMPLEX [Concomitant]
     Active Substance: CYANOCOBALAMIN\DEXPANTHENOL\NIACINAMIDE\PYRIDOXINE HYDROCHLORIDE\RIBOFLAVIN 5^-PHOSPHATE SODIUM\THIA
  13. MAGNESIUM [Concomitant]
     Active Substance: MAGNESIUM
  14. CALCIUM [Concomitant]
     Active Substance: CALCIUM

REACTIONS (7)
  - Pain in extremity [None]
  - Back pain [None]
  - Drug intolerance [None]
  - Myalgia [None]
  - Decreased activity [None]
  - Knee arthroplasty [None]
  - Hip arthroplasty [None]

NARRATIVE: CASE EVENT DATE: 20221208
